FAERS Safety Report 9724809 (Version 1)
Quarter: 2013Q4

REPORT INFORMATION
  Report Type: Spontaneous
  Country: US (occurrence: US)
  Receive Date: 20131202
  Receipt Date: 20131202
  Transmission Date: 20140711
  Serious: Yes (Other)
  Sender: FDA-Public Use
  Company Number: US-PFIZER INC-2013340377

PATIENT
  Sex: Female

DRUGS (1)
  1. PROVERA [Suspect]
     Dosage: UNK

REACTIONS (1)
  - Vaginal haemorrhage [Unknown]
